FAERS Safety Report 8562679-2 (Version None)
Quarter: 2012Q3

REPORT INFORMATION
  Report Type: 
  Country: None (occurrence: None)
  Receive Date: 20120802
  Receipt Date: 20120711
  Transmission Date: 20120928
  Serious: Yes (Other)
  Sender: FDA-Public Use
  Company Number: JP-ABBOTT-12P-087-0962800-00

PATIENT
  Age: 70 Year
  Sex: Female
  Weight: 50 kg

DRUGS (10)
  1. HYDROXYZINE [Concomitant]
     Indication: PRODUCT USED FOR UNKNOWN INDICATION
     Route: 030
  2. PROPOFOL [Concomitant]
     Indication: INDUCTION OF ANAESTHESIA
  3. NITROUS OXIDE [Concomitant]
     Indication: ANAESTHESIA
  4. OXYGEN [Concomitant]
     Indication: ANAESTHESIA
  5. SEVOFLURANE [Suspect]
     Indication: ANAESTHESIA
  6. LIDOCAINE [Suspect]
     Indication: VENTRICULAR EXTRASYSTOLES
     Route: 042
  7. ISOFLURANE [Suspect]
     Indication: ANAESTHESIA
     Dosage: 1.0-1.5%
  8. ATROPINE [Concomitant]
     Indication: PRODUCT USED FOR UNKNOWN INDICATION
     Route: 030
  9. VECURONIUM BROMIDE [Concomitant]
     Indication: PRODUCT USED FOR UNKNOWN INDICATION
  10. LEVODOPA [Concomitant]
     Indication: PARKINSON'S DISEASE

REACTIONS (3)
  - DRUG INEFFECTIVE [None]
  - TORSADE DE POINTES [None]
  - ELECTROCARDIOGRAM QT PROLONGED [None]
